FAERS Safety Report 8654071 (Version 3)
Quarter: 2014Q1

REPORT INFORMATION
  Report Type: Spontaneous
  Country: US (occurrence: None)
  Receive Date: 20120625
  Receipt Date: 20130220
  Transmission Date: 20141002
  Serious: Yes (Death)
  Sender: FDA-Public Use
  Company Number: US-AGG-06-2012-0496

PATIENT
  Age: 73 Year
  Sex: Male
  Weight: 60 kg

DRUGS (7)
  1. TIROFIBAN HYDROCHLORIDE [Suspect]
     Indication: ACUTE MYOCARDIAL INFARCTION
     Dosage: 25UG/KG X 1, 1X A DAY INTRAVNEOUS BOLUS
     Route: 040
     Dates: start: 20080715, end: 20090715
  2. TIROFIBAN HYDROCHLORIDE [Suspect]
     Indication: ACUTE MYOCARDIAL INFARCTION
     Dosage: 0.15UG/KG X 1, 1 X A MINUTE INTRAVENOUS
     Route: 042
     Dates: start: 20090715, end: 20090715
  3. HEPARIN [Suspect]
     Indication: ACUTE MYOCARDIAL INFARCTION
     Dosage: 5000IU X 1, 1 X A DAY
     Dates: start: 20080715, end: 20090715
  4. CLOPIDOGREL [Suspect]
     Indication: ACUTE MYOCARDIAL INFARCTION
     Dates: start: 20090715, end: 20090715
  5. ASPIRIN [Suspect]
     Dosage: 100MG X 1, 1 X A DAY
  6. ASPIRIN [Suspect]
     Route: 048
  7. DOPAMINE HYDROCHLORIDE [Concomitant]

REACTIONS (3)
  - Pulmonary alveolar haemorrhage [None]
  - Haemoptysis [None]
  - Off label use [None]
